FAERS Safety Report 5679682-2 (Version None)
Quarter: 2008Q1

REPORT INFORMATION
  Report Type: 
  Country: None (occurrence: None)
  Receive Date: 20080321
  Receipt Date: 20080307
  Transmission Date: 20080703
  Serious: Yes (Other)
  Sender: FDA-Public Use
  Company Number: US022943

PATIENT
  Sex: Male

DRUGS (6)
  1. ALERTEC [Suspect]
     Dosage: 100 MG QD ORAL
     Route: 048
  2. CRESTOR [Concomitant]
  3. EURO-FER [Concomitant]
  4. FLUOXETINE [Concomitant]
  5. MIRTAZAPINE [Concomitant]
  6. TRAZODONE HCL [Concomitant]

REACTIONS (4)
  - ANXIETY [None]
  - FACE OEDEMA [None]
  - HYPOAESTHESIA [None]
  - SWELLING [None]
